FAERS Safety Report 17235564 (Version 1)
Quarter: 2020Q1

REPORT INFORMATION
  Report Type: Spontaneous
  Country: US (occurrence: US)
  Receive Date: 20200103
  Receipt Date: 20200103
  Transmission Date: 20200409
  Serious: Yes (Hospitalization)
  Sender: FDA-Public Use
  Company Number: None

PATIENT
  Age: 12 Year
  Sex: Female

DRUGS (11)
  1. URSODIOL. [Concomitant]
     Active Substance: URSODIOL
  2. VITAMIN D [Concomitant]
     Active Substance: VITAMIN D NOS
  3. VITAMIN K [Concomitant]
     Active Substance: PHYTONADIONE
  4. RANITIDINE. [Concomitant]
     Active Substance: RANITIDINE
  5. VITAMIN A [Concomitant]
     Active Substance: VITAMIN A
  6. AZITHROMYCIN ANHYDROUS. [Concomitant]
     Active Substance: AZITHROMYCIN ANHYDROUS
  7. ALBUTEROL. [Concomitant]
     Active Substance: ALBUTEROL
  8. PULMOZYME [Suspect]
     Active Substance: DORNASE ALFA
     Route: 055
  9. CREON [Concomitant]
     Active Substance: PANCRELIPASE AMYLASE\PANCRELIPASE LIPASE\PANCRELIPASE PROTEASE
  10. BACTRIM [Concomitant]
     Active Substance: SULFAMETHOXAZOLE\TRIMETHOPRIM
  11. ETHAMBUTOL [Concomitant]
     Active Substance: ETHAMBUTOL HYDROCHLORIDE

REACTIONS (2)
  - Lung disorder [None]
  - Nasopharyngitis [None]

NARRATIVE: CASE EVENT DATE: 20191206
